FAERS Safety Report 9386692 (Version 1)
Quarter: 2013Q3

REPORT INFORMATION
  Report Type: Spontaneous
  Country: US (occurrence: US)
  Receive Date: 20130708
  Receipt Date: 20130708
  Transmission Date: 20140515
  Serious: No
  Sender: FDA-Public Use
  Company Number: US-PFIZER INC-2013197266

PATIENT
  Age: 15 Year
  Sex: Female

DRUGS (2)
  1. ZIPRASIDONE HCL [Suspect]
     Indication: OBSESSIVE-COMPULSIVE DISORDER
     Dosage: 20 MG, 1X/DAY
     Route: 048
     Dates: start: 201306
  2. ZIPRASIDONE HCL [Suspect]
     Indication: TRICHOTILLOMANIA

REACTIONS (2)
  - Off label use [Unknown]
  - Menstruation irregular [Unknown]
